FAERS Safety Report 7408735-3 (Version None)
Quarter: 2011Q1

REPORT INFORMATION
  Report Type: 
  Country: None (occurrence: None)
  Receive Date: 20110301
  Receipt Date: 20100809
  Transmission Date: 20110831
  Serious: Yes (Other)
  Sender: FDA-Public Use
  Company Number: US-JNJFOC-20100701916

PATIENT
  Age: 55 Year
  Sex: Female
  Weight: 61.2356 kg

DRUGS (14)
  1. MOTRIN [Suspect]
     Indication: ARTHRITIS
     Dosage: 800 MG, 3 IN 1 DAY, ORAL
     Route: 048
     Dates: start: 20100501
  2. MOTRIN [Suspect]
     Indication: MUSCULOSKELETAL PAIN
     Dosage: 800 MG, 3 IN 1 DAY, ORAL
     Route: 048
     Dates: start: 20100501
  3. TYLENOL (CAPLET) [Suspect]
     Indication: MUSCULOSKELETAL PAIN
     Dosage: ORAL
     Route: 048
  4. TYLENOL (CAPLET) [Suspect]
     Indication: ARTHRITIS
     Dosage: ORAL
     Route: 048
  5. NORVASC [Suspect]
     Indication: ARTHRITIS
     Dosage: 20 MG, ORAL
     Route: 048
     Dates: end: 20100601
  6. NORVASC [Suspect]
     Indication: MUSCULOSKELETAL PAIN
     Dosage: 20 MG, ORAL
     Route: 048
     Dates: end: 20100601
  7. CIPROFLOXACIN HYDROCHLORIDE [Suspect]
     Indication: MUSCULOSKELETAL PAIN
     Dosage: ORAL
     Route: 048
     Dates: start: 20100101, end: 20100601
  8. CIPROFLOXACIN HYDROCHLORIDE [Suspect]
     Indication: ARTHRITIS
     Dosage: ORAL
     Route: 048
     Dates: start: 20100101, end: 20100601
  9. MOBIC [Suspect]
     Indication: MUSCULOSKELETAL PAIN
     Dosage: 20 MG, ORAL
     Route: 048
     Dates: start: 20080101
  10. MOBIC [Suspect]
     Indication: ARTHRITIS
     Dosage: 20 MG, ORAL
     Route: 048
     Dates: start: 20080101
  11. NAPROXEN [Suspect]
     Indication: MUSCULOSKELETAL PAIN
     Dosage: 3 IN 1 DAY
     Dates: start: 20090101
  12. NAPROXEN [Suspect]
     Indication: ARTHRITIS
     Dosage: 3 IN 1 DAY
     Dates: start: 20090101
  13. CELEBREX [Suspect]
     Indication: MUSCULOSKELETAL PAIN
     Dosage: 20 MG, 3 IN 1 DAY, ORAL
     Route: 048
  14. CELEBREX [Suspect]
     Indication: ARTHRITIS
     Dosage: 20 MG, 3 IN 1 DAY, ORAL
     Route: 048

REACTIONS (2)
  - DRUG INEFFECTIVE [None]
  - ULCER [None]
